FAERS Safety Report 10042831 (Version 2)
Quarter: 2014Q1

REPORT INFORMATION
  Report Type: Spontaneous
  Country: US (occurrence: US)
  Receive Date: 20140327
  Receipt Date: 20140327
  Transmission Date: 20141002
  Serious: Yes (Other)
  Sender: FDA-Public Use
  Company Number: PHEH2014US003294

PATIENT
  Sex: Female

DRUGS (1)
  1. VOLTAREN-XR [Suspect]
     Indication: MUSCULOSKELETAL PAIN
     Dosage: UNK UKN, UNK
     Route: 048

REACTIONS (5)
  - Renal disorder [Unknown]
  - Anaphylactic shock [Unknown]
  - Swelling face [Unknown]
  - Scratch [Unknown]
  - Haemorrhage [Unknown]
